FAERS Safety Report 17455505 (Version 3)
Quarter: 2020Q1

REPORT INFORMATION
  Report Type: Spontaneous
  Country: US (occurrence: US)
  Receive Date: 20200225
  Receipt Date: 20200305
  Transmission Date: 20200409
  Serious: No
  Sender: FDA-Public Use
  Company Number: US-GW PHARMA-202002USGW00697

PATIENT

DRUGS (3)
  1. ONFI [Suspect]
     Active Substance: CLOBAZAM
     Indication: PRODUCT USED FOR UNKNOWN INDICATION
     Dosage: UNKNOWN DOSE, STOPPED IN 2019
     Route: 065
  2. EPIDIOLEX [Suspect]
     Active Substance: CANNABIDIOL
     Indication: LENNOX-GASTAUT SYNDROME
     Dosage: 500 MILLIGRAM, BID
     Route: 048
     Dates: start: 20190809
  3. AFINITOR [Suspect]
     Active Substance: EVEROLIMUS
     Indication: SEIZURE
     Dosage: UNK
     Route: 065
     Dates: start: 20200220

REACTIONS (7)
  - Dyspnoea [Unknown]
  - Seizure [Unknown]
  - Choking sensation [Unknown]
  - Abnormal behaviour [Recovering/Resolving]
  - Epilepsy [Unknown]
  - Generalised tonic-clonic seizure [Recovered/Resolved]
  - Cyanosis [Unknown]

NARRATIVE: CASE EVENT DATE: 202001
